FAERS Safety Report 19080696 (Version 6)
Quarter: 2024Q3

REPORT INFORMATION
  Report Type: Report from Study
  Country: US (occurrence: US)
  Receive Date: 20210331
  Receipt Date: 20240714
  Transmission Date: 20241016
  Serious: Yes (Other)
  Sender: TAKEDA
  Company Number: US-SHIRE-US202000969

PATIENT
  Sex: Female

DRUGS (3)
  1. HUMAN IMMUNOGLOBULIN G\HYALURONIDASE RECOMBINANT HUMAN [Suspect]
     Active Substance: HUMAN IMMUNOGLOBULIN G\HYALURONIDASE (HUMAN RECOMBINANT)
     Indication: Selective IgG subclass deficiency
     Dosage: UNK
     Route: 058
  2. HUMAN IMMUNOGLOBULIN G\HYALURONIDASE RECOMBINANT HUMAN [Suspect]
     Active Substance: HUMAN IMMUNOGLOBULIN G\HYALURONIDASE (HUMAN RECOMBINANT)
     Indication: Primary immunodeficiency syndrome
     Dosage: UNK UNK, Q5WEEKS
     Route: 065
  3. HUMAN IMMUNOGLOBULIN G\HYALURONIDASE RECOMBINANT HUMAN [Suspect]
     Active Substance: HUMAN IMMUNOGLOBULIN G\HYALURONIDASE (HUMAN RECOMBINANT)
     Dosage: UNK
     Route: 058

REACTIONS (10)
  - Renal failure [Recovered/Resolved]
  - Needle issue [Recovered/Resolved]
  - Osteoporosis [Unknown]
  - Weight decreased [Unknown]
  - Visual impairment [Unknown]
  - COVID-19 [Unknown]
  - Tremor [Unknown]
  - Rash [Unknown]
  - Back pain [Unknown]
  - Headache [Unknown]
